FAERS Safety Report 19889414 (Version 1)
Quarter: 2021Q3

REPORT INFORMATION
  Report Type: Spontaneous
  Country: US (occurrence: US)
  Receive Date: 20210928
  Receipt Date: 20210928
  Transmission Date: 20211014
  Serious: Yes (Other)
  Sender: FDA-Public Use
  Company Number: None

PATIENT
  Age: 44 Year
  Sex: Female
  Weight: 121.5 kg

DRUGS (6)
  1. PRIVIGEN [Suspect]
     Active Substance: HUMAN IMMUNOGLOBULIN G
     Indication: ENCEPHALITIS
     Dosage: ?          OTHER FREQUENCY:2GM/KG OVER 2 DAYS;?
     Route: 042
     Dates: start: 20210927, end: 20210927
  2. PRIVIGEN 5G [Concomitant]
     Dates: start: 20210927, end: 20210927
  3. PRIVIGEN 40G [Concomitant]
     Dates: start: 20210927, end: 20210927
  4. PRIVIGEN 40G [Concomitant]
     Dates: start: 20210927, end: 20210927
  5. PRIVIGEN [Suspect]
     Active Substance: HUMAN IMMUNOGLOBULIN G
     Indication: ENCEPHALITIS
     Dosage: ?          OTHER FREQUENCY:2GM/KG OVER 2 DAYS;?
     Route: 042
     Dates: start: 20210927, end: 20210927
  6. PRIVIGEN 40G [Concomitant]
     Dates: start: 20210927, end: 20210927

REACTIONS (8)
  - Headache [None]
  - Hot flush [None]
  - Anxiety [None]
  - Moaning [None]
  - Stress [None]
  - Pain [None]
  - Infusion site pain [None]
  - Chest pain [None]

NARRATIVE: CASE EVENT DATE: 20210927
